FAERS Safety Report 4754493-0 (Version None)
Quarter: 2005Q3

REPORT INFORMATION
  Report Type: 
  Country: None (occurrence: None)
  Receive Date: 20050829
  Receipt Date: 20050531
  Transmission Date: 20060218
  Serious: No
  Sender: FDA-Public Use
  Company Number: US-GLAXOSMITHKLINE-A0560970A

PATIENT
  Sex: Female

DRUGS (1)
  1. ZOVIRAX [Suspect]
     Dosage: 5PCT SINGLE DOSE
     Route: 061
     Dates: start: 20050523

REACTIONS (3)
  - DIZZINESS [None]
  - DYSPNOEA [None]
  - MENTAL DISORDER [None]
